FAERS Safety Report 12670010 (Version 1)
Quarter: 2016Q3

REPORT INFORMATION
  Report Type: Other
  Country: GB (occurrence: GB)
  Receive Date: 20160821
  Receipt Date: 20160821
  Transmission Date: 20161109
  Serious: Yes (Disabling, Other)
  Sender: FDA-Public Use
  Company Number: GB-DEXPHARM-20161781

PATIENT
  Age: 48 Year
  Sex: Male

DRUGS (1)
  1. HIBITANE [Suspect]
     Active Substance: CHLORHEXIDINE
     Indication: OTITIS EXTERNA

REACTIONS (2)
  - Deafness [Unknown]
  - Deafness neurosensory [Unknown]
